FAERS Safety Report 9068319 (Version 1)
Quarter: 2013Q1

REPORT INFORMATION
  Report Type: Spontaneous
  Country: US (occurrence: None)
  Receive Date: 20130212
  Receipt Date: 20130212
  Transmission Date: 20140127
  Serious: No
  Sender: FDA-Public Use
  Company Number: None

PATIENT
  Age: 55 Year
  Sex: Male
  Weight: 97.52 kg

DRUGS (1)
  1. ATORVASTATIN [Suspect]
     Dosage: 20 MG  DAILY

REACTIONS (3)
  - Wrong technique in drug usage process [None]
  - Product quality issue [None]
  - Product substitution issue [None]
